FAERS Safety Report 12536660 (Version 1)
Quarter: 2016Q3

REPORT INFORMATION
  Report Type: Spontaneous
  Country: TN (occurrence: TN)
  Receive Date: 20160707
  Receipt Date: 20160707
  Transmission Date: 20161109
  Serious: Yes (Hospitalization, Other)
  Sender: FDA-Public Use
  Company Number: TN-PFIZER INC-2016318474

PATIENT
  Age: 61 Year
  Sex: Male

DRUGS (1)
  1. SULFASALAZINE. [Suspect]
     Active Substance: SULFASALAZINE
     Indication: PSORIASIS
     Dosage: 100 MG, DAILY

REACTIONS (1)
  - Acute febrile neutrophilic dermatosis [Recovered/Resolved]
